FAERS Safety Report 24834695 (Version 1)
Quarter: 2025Q1

REPORT INFORMATION
  Report Type: Spontaneous
  Country: FR (occurrence: FR)
  Receive Date: 20250113
  Receipt Date: 20250113
  Transmission Date: 20250409
  Serious: Yes (Hospitalization, Other)
  Sender: MYLAN
  Company Number: FR-PFM-2024-07206

PATIENT
  Age: 62 Year
  Sex: Female

DRUGS (6)
  1. SIMVASTATIN [Suspect]
     Active Substance: SIMVASTATIN
     Indication: Product used for unknown indication
     Route: 065
  2. CITALOPRAM [Suspect]
     Active Substance: CITALOPRAM
     Indication: Product used for unknown indication
     Route: 065
  3. SPIRONOLACTONE [Suspect]
     Active Substance: SPIRONOLACTONE
     Indication: Product used for unknown indication
     Route: 065
  4. NICOTINE [Suspect]
     Active Substance: NICOTINE
     Indication: Product used for unknown indication
     Route: 065
  5. ASPIRIN [Suspect]
     Active Substance: ASPIRIN
     Indication: Product used for unknown indication
     Route: 065
  6. ALTHIAZIDE [Suspect]
     Active Substance: ALTHIAZIDE
     Indication: Product used for unknown indication
     Route: 065

REACTIONS (4)
  - Hemiplegia [Unknown]
  - Cerebral infarction [Unknown]
  - Reversible cerebral vasoconstriction syndrome [Unknown]
  - Thunderclap headache [Recovered/Resolved]
